FAERS Safety Report 10625607 (Version 1)
Quarter: 2014Q4

REPORT INFORMATION
  Report Type: Spontaneous
  Country: US (occurrence: None)
  Receive Date: 20141202
  Receipt Date: 20141202
  Transmission Date: 20150529
  Serious: Yes (Other)
  Sender: FDA-Public Use
  Company Number: 11068T

PATIENT
  Age: 26 Year
  Sex: Female
  Weight: 60.78 kg

DRUGS (1)
  1. DIMETHICONE, OCTINOXATE, AND OXYBENZONE [Suspect]
     Active Substance: DIMETHICONE\OCTINOXATE\OXYBENZONE
     Route: 061
     Dates: start: 20141102

REACTIONS (2)
  - Hypersensitivity [None]
  - Lip swelling [None]

NARRATIVE: CASE EVENT DATE: 20141102
